FAERS Safety Report 7010156-2 (Version None)
Quarter: 2010Q3

REPORT INFORMATION
  Report Type: 
  Country: None (occurrence: None)
  Receive Date: 20100923
  Receipt Date: 20100914
  Transmission Date: 20110219
  Serious: Yes (Other)
  Sender: FDA-Public Use
  Company Number: CN-PFIZER INC-2010115701

PATIENT
  Age: 14 Year
  Sex: Female

DRUGS (3)
  1. ZITHROMAX [Suspect]
     Indication: PYREXIA
     Dosage: UNK
     Route: 041
     Dates: start: 20100906, end: 20100907
  2. ZITHROMAX [Suspect]
     Dosage: UNK
     Route: 048
     Dates: start: 20100908, end: 20100910
  3. CEPHALOSPORINS AND RELATED SUBSTANCES [Concomitant]
     Dosage: UNK
     Dates: start: 20100903, end: 20100905

REACTIONS (2)
  - CRYING [None]
  - DEPRESSED MOOD [None]
